FAERS Safety Report 4757590-9 (Version None)
Quarter: 2005Q3

REPORT INFORMATION
  Report Type: 
  Country: None (occurrence: None)
  Receive Date: 20050830
  Receipt Date: 20050809
  Transmission Date: 20060218
  Serious: Yes (Hospitalization)
  Sender: FDA-Public Use
  Company Number: 200512614GDS

PATIENT
  Age: 76 Year
  Sex: Male

DRUGS (2)
  1. NIFEDIPINE [Suspect]
     Indication: HYPERTENSION
     Dates: start: 20020101
  2. IMATINIB [Suspect]
     Indication: MYELOID LEUKAEMIA
     Dosage: SEE IMAGE
     Dates: start: 20040301

REACTIONS (3)
  - CHOLELITHIASIS [None]
  - CHRONIC MYELOID LEUKAEMIA [None]
  - DRUG INTERACTION [None]
